FAERS Safety Report 5941261-7 (Version None)
Quarter: 2008Q4

REPORT INFORMATION
  Report Type: 
  Country: None (occurrence: None)
  Receive Date: 20081103
  Receipt Date: 20081103
  Transmission Date: 20090506
  Serious: Yes (Other)
  Sender: FDA-Public Use
  Company Number: None

PATIENT
  Sex: Male
  Weight: 6.3504 kg

DRUGS (1)
  1. NYSTATIN [Suspect]
     Indication: FUNGAL INFECTION
     Dosage: LIBERALLY 4 TIMES/DAY TOP
     Route: 061
     Dates: start: 20081031, end: 20081101

REACTIONS (5)
  - APPLICATION SITE BLEEDING [None]
  - APPLICATION SITE ECZEMA [None]
  - APPLICATION SITE ERYTHEMA [None]
  - APPLICATION SITE PRURITUS [None]
  - APPLICATION SITE REACTION [None]
